FAERS Safety Report 19517426 (Version 1)
Quarter: 2021Q3

REPORT INFORMATION
  Report Type: Spontaneous
  Country: DE (occurrence: DE)
  Receive Date: 20210712
  Receipt Date: 20210712
  Transmission Date: 20211014
  Serious: Yes (Other)
  Sender: FDA-Public Use
  Company Number: DE-AUROBINDO-AUR-APL-2021-028699

PATIENT
  Age: 27 Year
  Sex: Male
  Weight: 72 kg

DRUGS (1)
  1. MIRTAZAPINE. [Suspect]
     Active Substance: MIRTAZAPINE
     Indication: DEPRESSION
     Dosage: 30 MILLIGRAM (NEBENWIRKUNG BEI 15 MG, 22,5 MG UND 30 MG AUFGETRETEN)
     Route: 048
     Dates: start: 20201127

REACTIONS (3)
  - Sleep paralysis [Recovered/Resolved]
  - Cataplexy [Recovered/Resolved]
  - Narcolepsy [Recovered/Resolved]

NARRATIVE: CASE EVENT DATE: 20201226
